FAERS Safety Report 22072415 (Version 1)
Quarter: 2023Q1

REPORT INFORMATION
  Report Type: Other
  Country: US (occurrence: None)
  Receive Date: 20230308
  Receipt Date: 20230308
  Transmission Date: 20230417
  Serious: Yes (Hospitalization, Other)
  Sender: FDA-Public Use
  Company Number: US-ROCHE-2063771

PATIENT
  Sex: Female
  Weight: 90.800 kg

DRUGS (14)
  1. CELLCEPT [Suspect]
     Active Substance: MYCOPHENOLATE MOFETIL
     Indication: Scleroderma
     Route: 048
  2. CELLCEPT [Suspect]
     Active Substance: MYCOPHENOLATE MOFETIL
     Indication: Interstitial lung disease
     Route: 048
     Dates: start: 201703, end: 2018
  3. CELLCEPT [Suspect]
     Active Substance: MYCOPHENOLATE MOFETIL
     Indication: Pulmonary fibrosis
     Route: 048
     Dates: start: 2018
  4. RITUXAN [Suspect]
     Active Substance: RITUXIMAB
     Indication: Systemic scleroderma
     Route: 042
     Dates: start: 20200330
  5. RITUXAN [Suspect]
     Active Substance: RITUXIMAB
     Indication: Pulmonary fibrosis
  6. AMLODIPINE [Concomitant]
     Active Substance: AMLODIPINE BESYLATE
     Indication: Hypertension
     Route: 048
  7. AMMONIUM LACTATE [Concomitant]
     Active Substance: AMMONIUM LACTATE
     Indication: Scleroderma
     Route: 061
     Dates: start: 201711
  8. ASPIRIN [Concomitant]
     Active Substance: ASPIRIN
     Route: 048
  9. CYCLOBENZAPRINE [Concomitant]
     Active Substance: CYCLOBENZAPRINE
     Route: 048
     Dates: start: 201905
  10. FLUTICASONE [Concomitant]
     Active Substance: FLUTICASONE
     Dates: start: 201905
  11. PANTOPRAZOLE [Concomitant]
     Active Substance: PANTOPRAZOLE
  12. PRAVASTATIN [Concomitant]
     Active Substance: PRAVASTATIN
     Indication: Blood cholesterol increased
     Route: 048
  13. PREDNISONE [Concomitant]
     Active Substance: PREDNISONE
     Route: 048
  14. BENZONATATE [Concomitant]
     Active Substance: BENZONATATE
     Indication: Cough
     Route: 048
     Dates: start: 201905

REACTIONS (50)
  - Chest pain [Recovered/Resolved]
  - Off label use [Unknown]
  - Off label use [Unknown]
  - Dyspepsia [Not Recovered/Not Resolved]
  - Oesophageal spasm [Not Recovered/Not Resolved]
  - Skin discolouration [Not Recovered/Not Resolved]
  - Cough [Not Recovered/Not Resolved]
  - Muscle spasms [Not Recovered/Not Resolved]
  - Fatigue [Not Recovered/Not Resolved]
  - Myalgia [Not Recovered/Not Resolved]
  - Blood cholesterol increased [Not Recovered/Not Resolved]
  - Stomatitis [Recovered/Resolved]
  - Arthralgia [Not Recovered/Not Resolved]
  - Dyspnoea [Not Recovered/Not Resolved]
  - Rash [Unknown]
  - Muscle tightness [Unknown]
  - Dysphagia [Unknown]
  - Gastrooesophageal reflux disease [Unknown]
  - Peripheral coldness [Unknown]
  - Chills [Unknown]
  - Weight decreased [Unknown]
  - Hyperhidrosis [Unknown]
  - Fatigue [Unknown]
  - Night sweats [Unknown]
  - Asthenia [Unknown]
  - Sinus congestion [Unknown]
  - Oropharyngeal pain [Unknown]
  - Dry throat [Unknown]
  - Vision blurred [Unknown]
  - Photophobia [Unknown]
  - Dry eye [Unknown]
  - Dyspnoea [Unknown]
  - Anal incontinence [Unknown]
  - Appetite disorder [Unknown]
  - Urinary incontinence [Unknown]
  - Back pain [Unknown]
  - Myalgia [Unknown]
  - Neck pain [Unknown]
  - Pruritus [Unknown]
  - Sensory disturbance [Unknown]
  - Temperature intolerance [Unknown]
  - Seasonal allergy [Unknown]
  - Depression [Unknown]
  - Anxiety [Unknown]
  - Insomnia [Unknown]
  - Systemic scleroderma [Unknown]
  - Scleroderma [Unknown]
  - Oesophageal motility disorder [Unknown]
  - Raynaud^s phenomenon [Unknown]
  - Osteoarthritis [Unknown]

NARRATIVE: CASE EVENT DATE: 20170301
